APPROVED DRUG PRODUCT: METHYLDOPA AND HYDROCHLOROTHIAZIDE
Active Ingredient: HYDROCHLOROTHIAZIDE; METHYLDOPA
Strength: 30MG;500MG
Dosage Form/Route: TABLET;ORAL
Application: A071069 | Product #001
Applicant: WATSON LABORATORIES INC
Approved: Jan 19, 1989 | RLD: No | RS: No | Type: DISCN